FAERS Safety Report 4352627-3 (Version None)
Quarter: 2004Q2

REPORT INFORMATION
  Report Type: 
  Country: None (occurrence: None)
  Receive Date: 20040504
  Receipt Date: 20040205
  Transmission Date: 20050107
  Serious: Yes (Death, Hospitalization, Other)
  Sender: FDA-Public Use
  Company Number: PHNU2004DE00812

PATIENT
  Age: 76 Year
  Sex: Male
  Weight: 70 kg

DRUGS (6)
  1. ZOMETA [Suspect]
     Indication: PROSTATE CANCER METASTATIC
     Dosage: 4 MG, QMO
     Route: 042
     Dates: start: 20031001, end: 20040101
  2. ENOXAPARIN SODIUM [Suspect]
     Indication: DEEP VEIN THROMBOSIS
     Dosage: 80 MG, QD
     Route: 058
     Dates: start: 20040121, end: 20040130
  3. METOCLOPRAMIDE [Concomitant]
  4. PROSTICA [Concomitant]
  5. AMITRIPTYLINE HCL [Concomitant]
  6. HEPARIN CALCIUM ^RATIOPHARM^ [Suspect]
     Indication: DEEP VEIN THROMBOSIS
     Dosage: 5000 IU, BID
     Route: 058
     Dates: start: 20040201, end: 20040301

REACTIONS (10)
  - DEEP VEIN THROMBOSIS [None]
  - FACTOR X DEFICIENCY [None]
  - FIBRINOLYSIS INCREASED [None]
  - GENERAL PHYSICAL HEALTH DETERIORATION [None]
  - HEPARIN-INDUCED THROMBOCYTOPENIA [None]
  - INTERNATIONAL NORMALISED RATIO INCREASED [None]
  - MALIGNANT NEOPLASM PROGRESSION [None]
  - PLATELET COUNT DECREASED [None]
  - PROSTATE CANCER METASTATIC [None]
  - PROTHROMBIN TIME PROLONGED [None]
